FAERS Safety Report 6837512-7 (Version None)
Quarter: 2010Q3

REPORT INFORMATION
  Report Type: 
  Country: None (occurrence: None)
  Receive Date: 20100713
  Receipt Date: 20070515
  Transmission Date: 20110219
  Serious: No
  Sender: FDA-Public Use
  Company Number: US-PFIZER INC-2007039104

PATIENT
  Age: 83 Year
  Sex: Female
  Weight: 44 kg

DRUGS (4)
  1. CHANTIX [Suspect]
  2. NICOTINE [Suspect]
     Indication: SMOKING CESSATION THERAPY
     Route: 062
     Dates: start: 20070310, end: 20070317
  3. NICOTINE [Suspect]
     Route: 062
     Dates: start: 20070318, end: 20070322
  4. XANAX [Concomitant]

REACTIONS (3)
  - APPLICATION SITE PRURITUS [None]
  - NAUSEA [None]
  - VOMITING [None]
